FAERS Safety Report 17797587 (Version 1)
Quarter: 2020Q2

REPORT INFORMATION
  Report Type: Spontaneous
  Country: US (occurrence: US)
  Receive Date: 20200515
  Receipt Date: 20200515
  Transmission Date: 20200714
  Serious: Yes (Hospitalization)
  Sender: FDA-Public Use
  Company Number: None

PATIENT
  Age: 62 Year
  Sex: Female

DRUGS (4)
  1. WELLBUTRIN [Concomitant]
     Active Substance: BUPROPION HYDROCHLORIDE
  2. PROVIGIL [Concomitant]
     Active Substance: MODAFINIL
  3. SEROQUEL [Concomitant]
     Active Substance: QUETIAPINE FUMARATE
  4. HUMIRA [Suspect]
     Active Substance: ADALIMUMAB
     Indication: RHEUMATOID ARTHRITIS
     Dosage: ?          OTHER DOSE:1 PEN  Q2W SQ?
     Route: 058
     Dates: start: 20190824

REACTIONS (1)
  - Surgery [None]

NARRATIVE: CASE EVENT DATE: 20200513
